FAERS Safety Report 9340380 (Version 2)
Quarter: 2013Q3

REPORT INFORMATION
  Report Type: Spontaneous
  Country: CA (occurrence: CA)
  Receive Date: 20130610
  Receipt Date: 20130708
  Transmission Date: 20140515
  Serious: Yes (Other)
  Sender: FDA-Public Use
  Company Number: CA-AMGEN-CANSP2013024973

PATIENT
  Age: 81 Year
  Sex: Female

DRUGS (7)
  1. ENBREL [Suspect]
     Indication: PSORIATIC ARTHROPATHY
     Dosage: 50 MG, UNK
     Route: 065
     Dates: start: 20121107
  2. MTX                                /00113801/ [Concomitant]
     Dosage: UNK
  3. ATENOLOL [Concomitant]
     Dosage: UNK
  4. COVERSYL                           /00790702/ [Concomitant]
     Dosage: UNK
  5. ALENDRONATE [Concomitant]
     Dosage: UNK UNK, QWK
  6. TYLENOL EXTRA STRENGTH [Concomitant]
     Dosage: UNK
  7. CLOPIDOGREL [Concomitant]
     Dosage: UNK

REACTIONS (4)
  - Cerebrovascular accident [Recovered/Resolved]
  - Hypoaesthesia [Unknown]
  - Local swelling [Not Recovered/Not Resolved]
  - Paraesthesia [Recovered/Resolved]
